FAERS Safety Report 14417200 (Version 1)
Quarter: 2018Q1

REPORT INFORMATION
  Report Type: Spontaneous
  Country: US (occurrence: US)
  Receive Date: 20180122
  Receipt Date: 20180122
  Transmission Date: 20180509
  Serious: No
  Sender: FDA-Public Use
  Company Number: US-BAYER-2018-012489

PATIENT
  Sex: Female

DRUGS (1)
  1. MIRALAX [Suspect]
     Active Substance: POLYETHYLENE GLYCOL 3350
     Indication: DIAGNOSTIC PROCEDURE
     Dosage: 32OZ OF GATORADE WITH 4 OZ OF MIRALAX
     Route: 065

REACTIONS (2)
  - Product use in unapproved indication [None]
  - Product prescribing issue [Unknown]
